FAERS Safety Report 16031060 (Version 2)
Quarter: 2019Q2

REPORT INFORMATION
  Report Type: Spontaneous
  Country: GB (occurrence: PL)
  Receive Date: 20190304
  Receipt Date: 20190528
  Transmission Date: 20190711
  Serious: Yes (Death, Life-Threatening, Disabling, Other)
  Sender: FDA-Public Use
  Company Number: PL-FRESENIUS KABI-FK201901961

PATIENT
  Age: 67 Year
  Sex: Female
  Weight: 70 kg

DRUGS (49)
  1. VANCOMYCIN (MANUFACTURER UNKNOWN) [Suspect]
     Active Substance: VANCOMYCIN
     Indication: NOSOCOMIAL INFECTION
     Dosage: DATES OF DRUG ADMINISTRATION AND DOSAGE: 1,5 G/DAY ON 27/10/2018. FROM 28/10/2018 TO 09/11/2018 1G/D
     Route: 048
     Dates: start: 20181027, end: 20181027
  2. VANCOMYCIN (MANUFACTURER UNKNOWN) [Suspect]
     Active Substance: VANCOMYCIN
     Indication: CLOSTRIDIUM DIFFICILE INFECTION
     Dosage: DATES OF DRUG ADMINISTRATION AND DOSAGE: 1,5 G/DAY ON 27/10/2018. FROM 28/10/2018 TO 09/11/2018 1G/D
     Route: 048
     Dates: start: 20181028, end: 20181109
  3. VANCOMYCIN (MANUFACTURER UNKNOWN) [Suspect]
     Active Substance: VANCOMYCIN
     Dosage: DATES OF DRUG ADMINISTRATION: 15/10/2018-21/10/2018 WITH BREAKS DESCRIBED IN CASE NARRATIVE. FROM 24
     Route: 042
     Dates: start: 20181124, end: 20181125
  4. INSULIN HUMAN [Suspect]
     Active Substance: INSULIN HUMAN
     Route: 042
     Dates: start: 20181123, end: 20181123
  5. AMANTADINE HYDROCHLORIDE. [Concomitant]
     Active Substance: AMANTADINE HYDROCHLORIDE
     Route: 048
     Dates: start: 20181024, end: 20181114
  6. OXYCODONE HYDROCHLORIDE. [Concomitant]
     Active Substance: OXYCODONE HYDROCHLORIDE
     Route: 042
     Dates: start: 20181115, end: 20181120
  7. GLUCOSE (MANUFACTURER UNKNOWN) [Suspect]
     Active Substance: DEXTROSE
     Dosage: 1500ML/DAY
     Route: 042
     Dates: start: 20181117, end: 20181117
  8. INSULIN HUMAN [Suspect]
     Active Substance: INSULIN HUMAN
     Dosage: INTRAVENOUS INFUSION OF INSULIN BETWEEN 2 AND 7, 1 UNIT PER HOUR
     Route: 042
     Dates: start: 20181123, end: 20181123
  9. PIRACETAM [Concomitant]
     Active Substance: PIRACETAM
     Indication: PRODUCT USED FOR UNKNOWN INDICATION
     Dosage: DOSE: 2.4 G/DAY. DATE OF DRUG ADMINISTRATION: 24/10/2018-15/11/2018; 16/11/2018-25/11/2018
     Route: 042
  10. ORNITHINE ASPARTATE [Concomitant]
     Active Substance: ORNITHINE ASPARTATE
     Indication: PRODUCT USED FOR UNKNOWN INDICATION
     Route: 041
     Dates: start: 20181116, end: 20181120
  11. IRON DEXTRAN [Concomitant]
     Active Substance: IRON DEXTRAN
     Dosage: 1G/100ML
     Route: 042
     Dates: start: 20181017, end: 20181019
  12. OXYCODONE HYDROCHLORIDE. [Concomitant]
     Active Substance: OXYCODONE HYDROCHLORIDE
     Route: 042
     Dates: start: 20181012, end: 20181018
  13. GLUCOSE (MANUFACTURER UNKNOWN) [Suspect]
     Active Substance: DEXTROSE
     Indication: PRODUCT USED FOR UNKNOWN INDICATION
     Dosage: 1000ML/DAY
     Route: 042
     Dates: start: 20181116, end: 20181116
  14. INSULIN HUMAN [Suspect]
     Active Substance: INSULIN HUMAN
     Indication: DIABETES MELLITUS
     Dosage: DOSAGE FROM 25/10/2018 TO 15/11/2018 ACCORDING TO GLYCEMIC PROFILE. ON 16/11/2018 CONTINOUS INFUSION
     Route: 042
     Dates: start: 20181119, end: 20181119
  15. DEXAMETHASONE SODIUM PHOSPHATE. [Concomitant]
     Active Substance: DEXAMETHASONE SODIUM PHOSPHATE
     Indication: PRODUCT USED FOR UNKNOWN INDICATION
     Route: 042
     Dates: start: 20181122, end: 20181125
  16. PANTOPRAZOLE SODIUM SESQUIHYDRATE [Concomitant]
     Active Substance: PANTOPRAZOLE SODIUM
     Dosage: DOSE: 40 MG/DAY FROM 15/10/2018 TO 15/11/2018?80 MG/DAY FROM 16/11/2018 TO 25/11/2018?PROSZEK DO SPO
     Route: 042
     Dates: start: 20181116, end: 20181125
  17. METOPROLOL SUCCINATE. [Concomitant]
     Active Substance: METOPROLOL SUCCINATE
     Route: 042
     Dates: start: 20181015, end: 20181015
  18. SODIUM BICARBONATE. [Concomitant]
     Active Substance: SODIUM BICARBONATE
     Route: 042
     Dates: start: 20181115, end: 20181118
  19. METAMIZOLE SODIUM [Concomitant]
     Active Substance: METAMIZOLE SODIUM
     Dosage: DOSE: 2.5 MG/100 ML ON 15/10/2018; 2.5 MG/100 ML ON 01/11/2018 (IF NECESSARY)
     Route: 042
  20. SPIRONOLACTONE. [Concomitant]
     Active Substance: SPIRONOLACTONE
     Route: 048
     Dates: start: 20181023, end: 20181115
  21. AMANTADINE SULFATE [Concomitant]
     Active Substance: AMANTADINE SULFATE
     Dosage: DOSE: 500 ML (5H INFUSION)
     Route: 042
     Dates: start: 20181115, end: 20181117
  22. MORPHINE [Suspect]
     Active Substance: MORPHINE
     Indication: PRODUCT USED FOR UNKNOWN INDICATION
     Dosage: DOSAGE: 60 MG+5 MG/H FOR 17 HOURS=145 MG/DAY
     Route: 042
     Dates: start: 20181124, end: 20181125
  23. MEROPENEM. [Concomitant]
     Active Substance: MEROPENEM
     Route: 042
     Dates: start: 20181115, end: 20181120
  24. INSULIN HUMAN [Suspect]
     Active Substance: INSULIN HUMAN
     Route: 042
     Dates: start: 20181118, end: 20181118
  25. INSULIN HUMAN [Suspect]
     Active Substance: INSULIN HUMAN
     Route: 042
     Dates: start: 20181122, end: 20181122
  26. INSULIN HUMAN [Suspect]
     Active Substance: INSULIN HUMAN
     Dosage: 56 UNITS OF INSULIN (2 UNITS PER HOUR BETWEEN HOURS 7 AM TILL 7 PM  13 HOURS PLUS TWO TIMES 15 UNIT
     Route: 042
     Dates: start: 20181124, end: 20181124
  27. ENOXAPARIN SODIUM. [Concomitant]
     Active Substance: ENOXAPARIN SODIUM
     Dosage: NO INFORMATION ON DOSAGE
     Route: 042
     Dates: start: 20181015, end: 20181115
  28. FUROSEMIDE. [Concomitant]
     Active Substance: FUROSEMIDE
     Route: 042
     Dates: start: 20181013, end: 20181023
  29. PYRIDOXINE HYDROCHLORIDE/CYANOCOBALAMIN/RIBOFLAVIN/NICOTINAMIDE/CALCIUM PANTOTHENATE/FURSULTIAMINE/C [Concomitant]
     Dosage: 2G/200ML
     Route: 042
     Dates: start: 20181117, end: 20181117
  30. INSULIN HUMAN [Suspect]
     Active Substance: INSULIN HUMAN
     Route: 042
     Dates: start: 20181121, end: 20181121
  31. NOREPINEPHRINE BITARTRATE. [Concomitant]
     Active Substance: NOREPINEPHRINE BITARTRATE
     Indication: PRODUCT USED FOR UNKNOWN INDICATION
     Dosage: DATE OF DRUG ADMINISTRATION AND DOSAGE: ?1.4 MG/HOUR FROM 12/10/2018 TO 16/10/2018?4 MG/HOUR FROM 16
     Route: 042
  32. METOPROLOL SUCCINATE. [Concomitant]
     Active Substance: METOPROLOL SUCCINATE
     Route: 048
     Dates: start: 20181016, end: 20181115
  33. HYDROCORTISONE. [Concomitant]
     Active Substance: HYDROCORTISONE
     Route: 042
     Dates: start: 20181116, end: 20181121
  34. FUROSEMIDE. [Concomitant]
     Active Substance: FUROSEMIDE
     Route: 042
     Dates: start: 20181024, end: 20181101
  35. AMANTADINE SULFATE [Concomitant]
     Active Substance: AMANTADINE SULFATE
     Route: 042
     Dates: start: 20181115, end: 20181120
  36. VANCOMYCIN (MANUFACTURER UNKNOWN) [Suspect]
     Active Substance: VANCOMYCIN
     Dosage: DATES OF DRUG ADMINISTRATION: 15/10/2018-21/10/2018 WITH BREAKS DESCRIBED IN CASE NARRATIVE. FROM 24
     Route: 042
     Dates: start: 20181015, end: 20181021
  37. IMIPENEM/CILASTATINA KABI [Suspect]
     Active Substance: CILASTATIN SODIUM\IMIPENEM
     Indication: NOSOCOMIAL INFECTION
     Dosage: UNK
     Route: 042
     Dates: start: 20181117, end: 20181125
  38. INSULIN HUMAN [Suspect]
     Active Substance: INSULIN HUMAN
     Route: 042
     Dates: start: 20181116, end: 20181116
  39. INSULIN HUMAN [Suspect]
     Active Substance: INSULIN HUMAN
     Route: 042
     Dates: start: 20181120, end: 20181120
  40. INSULIN HUMAN [Suspect]
     Active Substance: INSULIN HUMAN
     Route: 042
     Dates: start: 20181117, end: 20181117
  41. AMIODARONE HYDROCHLORIDE. [Concomitant]
     Active Substance: AMIODARONE HYDROCHLORIDE
     Route: 041
     Dates: start: 20181115, end: 20181118
  42. PARACETAMOL [Concomitant]
     Active Substance: ACETAMINOPHEN
     Route: 042
     Dates: start: 20181015, end: 20181015
  43. PYRIDOXINE HYDROCHLORIDE/CYANOCOBALAMIN/RIBOFLAVIN/NICOTINAMIDE/CALCIUM PANTOTHENATE/FURSULTIAMINE/C [Concomitant]
     Route: 042
     Dates: start: 20181115, end: 20181120
  44. MEROPENEM. [Concomitant]
     Active Substance: MEROPENEM
     Dosage: 3G/DAY/300ML
     Route: 042
     Dates: start: 20181014, end: 20181020
  45. GLUCOSE (MANUFACTURER UNKNOWN) [Suspect]
     Active Substance: DEXTROSE
     Dosage: 1000ML/DAY
     Route: 042
     Dates: start: 20181118, end: 20181125
  46. INSULIN HUMAN [Suspect]
     Active Substance: INSULIN HUMAN
     Dosage: INFUSION OF INSULIN WAS CONTINUED.
     Route: 042
     Dates: start: 20181125, end: 20181125
  47. PANTOPRAZOLE SODIUM SESQUIHYDRATE [Concomitant]
     Active Substance: PANTOPRAZOLE SODIUM
     Indication: PRODUCT USED FOR UNKNOWN INDICATION
     Dosage: DOSE: 40 MG/DAY FROM 15/10/2018 TO 15/11/2018?80 MG/DAY FROM 16/11/2018 TO 25/11/2018
     Route: 042
     Dates: start: 20181015, end: 20181115
  48. QUETIAPINE FUMARATE. [Concomitant]
     Active Substance: QUETIAPINE FUMARATE
     Route: 048
     Dates: start: 20181017, end: 20181101
  49. DIGOXIN. [Concomitant]
     Active Substance: DIGOXIN
     Route: 042
     Dates: start: 20181015, end: 20181015

REACTIONS (34)
  - Central nervous system injury [Fatal]
  - Hypoxia [Fatal]
  - Acidosis [Fatal]
  - Blood creatinine increased [Fatal]
  - Renal injury [Fatal]
  - Haemoglobin decreased [Fatal]
  - Anisocytosis [Fatal]
  - Creatinine renal clearance decreased [Fatal]
  - Hypotonia [Fatal]
  - Liver injury [Fatal]
  - Loss of consciousness [Fatal]
  - Hyperkalaemia [Fatal]
  - Chromaturia [Fatal]
  - Bradycardia [Fatal]
  - Haemolytic anaemia [Fatal]
  - Thrombocytopenia [Fatal]
  - Tachycardia [Fatal]
  - Prescribed overdose [Fatal]
  - Hypoglycaemia [Fatal]
  - Blood pressure decreased [Fatal]
  - Hyperchloraemia [Fatal]
  - Tachyarrhythmia [Fatal]
  - Blood bilirubin increased [Fatal]
  - Hyperaemia [Fatal]
  - Splenic injury [Fatal]
  - Hepatitis fulminant [Fatal]
  - Hypochromasia [Fatal]
  - Blood urea increased [Fatal]
  - Petechiae [Fatal]
  - Heart rate increased [Fatal]
  - Oliguria [Fatal]
  - Red blood cell count decreased [Fatal]
  - Drug level above therapeutic [Fatal]
  - Macrocytosis [Fatal]

NARRATIVE: CASE EVENT DATE: 20181017
